FAERS Safety Report 5009630-X (Version None)
Quarter: 2006Q2

REPORT INFORMATION
  Report Type: 
  Country: None (occurrence: None)
  Receive Date: 20060524
  Receipt Date: 20060425
  Transmission Date: 20061013
  Serious: Yes (Other)
  Sender: FDA-Public Use
  Company Number: US-GLAXOSMITHKLINE-A0603619A

PATIENT
  Sex: Female

DRUGS (3)
  1. AVANDIA [Suspect]
     Indication: DIABETES MELLITUS
     Route: 048
     Dates: start: 20060320, end: 20060101
  2. METFORMIN [Suspect]
     Indication: DIABETES MELLITUS
     Route: 065
  3. INSULIN [Suspect]
     Indication: DIABETES MELLITUS
     Route: 065

REACTIONS (10)
  - ABDOMINAL DISTENSION [None]
  - CHROMATURIA [None]
  - DEPRESSED LEVEL OF CONSCIOUSNESS [None]
  - DIARRHOEA [None]
  - FAECES DISCOLOURED [None]
  - FLUID RETENTION [None]
  - GASTROINTESTINAL HAEMORRHAGE [None]
  - OEDEMA PERIPHERAL [None]
  - SINUS CONGESTION [None]
  - SWELLING [None]
